FAERS Safety Report 8020837-X (Version None)
Quarter: 2012Q1

REPORT INFORMATION
  Report Type: 
  Country: None (occurrence: None)
  Receive Date: 20120104
  Receipt Date: 20111227
  Transmission Date: 20120608
  Serious: No
  Sender: FDA-Public Use
  Company Number: US-BIOGENIDEC-2011BI048963

PATIENT
  Sex: Female

DRUGS (2)
  1. AVONEX [Suspect]
     Route: 030
  2. AVONEX [Suspect]
     Indication: MULTIPLE SCLEROSIS
     Route: 030
     Dates: start: 20070221

REACTIONS (21)
  - BLADDER PROLAPSE [None]
  - SKIN BURNING SENSATION [None]
  - DYSGRAPHIA [None]
  - MUSCLE TIGHTNESS [None]
  - PAIN IN EXTREMITY [None]
  - RASH [None]
  - INSOMNIA [None]
  - OCCIPITAL NEURALGIA [None]
  - FATIGUE [None]
  - INJECTION SITE PAIN [None]
  - SWELLING FACE [None]
  - HEADACHE [None]
  - BODY TEMPERATURE FLUCTUATION [None]
  - MEMORY IMPAIRMENT [None]
  - PAIN [None]
  - FALL [None]
  - NEURALGIA [None]
  - GAIT DISTURBANCE [None]
  - OEDEMA PERIPHERAL [None]
  - BALANCE DISORDER [None]
  - CHILLS [None]
